FAERS Safety Report 19685339 (Version 1)
Quarter: 2021Q3

REPORT INFORMATION
  Report Type: Spontaneous
  Country: US (occurrence: US)
  Receive Date: 20210810
  Receipt Date: 20210810
  Transmission Date: 20211014
  Serious: No
  Sender: FDA-Public Use
  Company Number: None

PATIENT
  Age: 67 Year
  Sex: Female

DRUGS (1)
  1. REMICADE [Suspect]
     Active Substance: INFLIXIMAB
     Indication: CROHN^S DISEASE
     Route: 041

REACTIONS (8)
  - Dyspnoea [None]
  - Tachypnoea [None]
  - Back pain [None]
  - Malaise [None]
  - Pain in extremity [None]
  - Chest pain [None]
  - Pyrexia [None]
  - Flushing [None]

NARRATIVE: CASE EVENT DATE: 20210810
